FAERS Safety Report 8158685-2 (Version None)
Quarter: 2012Q1

REPORT INFORMATION
  Report Type: 
  Country: None (occurrence: None)
  Receive Date: 20120223
  Receipt Date: 20120210
  Transmission Date: 20120608
  Serious: Yes (Other)
  Sender: FDA-Public Use
  Company Number: BR-ELI_LILLY_AND_COMPANY-BR201202003258

PATIENT
  Sex: Female
  Weight: 51 kg

DRUGS (8)
  1. FORTEO [Suspect]
     Dosage: UNK, UNKNOWN
     Route: 065
  2. FORTEO [Suspect]
     Indication: OSTEOPOROSIS
     Dosage: UNK, UNKNOWN
     Route: 065
     Dates: start: 20110901
  3. AMLODIPINE [Concomitant]
     Indication: HYPERTENSION
     Dosage: UNK, QD
     Route: 065
  4. ALENDRONATE SODIUM [Concomitant]
     Indication: OSTEOPOROSIS
     Dosage: UNK, UNKNOWN
     Route: 065
  5. DRAMIN [Concomitant]
     Indication: LABYRINTHITIS
     Dosage: UNK, UNKNOWN
     Route: 065
  6. ENALAPRIL MALEATE [Concomitant]
     Indication: HYPERTENSION
     Dosage: UNK, QD
     Route: 065
  7. CALCIUM [Concomitant]
     Indication: OSTEOPOROSIS
     Dosage: UNK, UNKNOWN
     Route: 065
  8. LABIRIN [Concomitant]
     Indication: LABYRINTHITIS
     Dosage: UNK, UNKNOWN
     Route: 065

REACTIONS (6)
  - DIZZINESS [None]
  - HYPOPHAGIA [None]
  - INSOMNIA [None]
  - WEIGHT DECREASED [None]
  - PAROSMIA [None]
  - VOMITING [None]
